FAERS Safety Report 16276636 (Version 2)
Quarter: 2019Q3

REPORT INFORMATION
  Report Type: Spontaneous
  Country: US (occurrence: US)
  Receive Date: 20190506
  Receipt Date: 20190710
  Transmission Date: 20191004
  Serious: Yes (Other)
  Sender: FDA-Public Use
  Company Number: US-PFIZER INC-2019185256

PATIENT
  Age: 45 Year
  Sex: Female

DRUGS (12)
  1. TOPIRAMATE. [Interacting]
     Active Substance: TOPIRAMATE
     Dosage: 100 MG, DAILY(4TH WEEK)
  2. TOPIRAMATE. [Interacting]
     Active Substance: TOPIRAMATE
     Dosage: 75 MG, DAILY (5TH WEEK)
  3. TOPIRAMATE. [Interacting]
     Active Substance: TOPIRAMATE
     Dosage: 50 MG, DAILY(2ND WEEK)
  4. TOPIRAMATE. [Interacting]
     Active Substance: TOPIRAMATE
     Dosage: 75 MG, DAILY(3RD WEEK)
  5. TOPIRAMATE. [Interacting]
     Active Substance: TOPIRAMATE
     Dosage: 50 MG, DAILY(6TH WEEK)
  6. TOPIRAMATE. [Interacting]
     Active Substance: TOPIRAMATE
     Dosage: 25 MG, DAILY(7TH WEEK)
     Dates: start: 20190425, end: 20190425
  7. MONTELUKAST [Concomitant]
     Active Substance: MONTELUKAST SODIUM
     Dosage: 10 MG, UNK
     Dates: start: 2008
  8. CYANOCOBALAMIN. [Concomitant]
     Active Substance: CYANOCOBALAMIN
     Dosage: UNK
     Dates: start: 201803
  9. CYCLOBENZAPRINE. [Concomitant]
     Active Substance: CYCLOBENZAPRINE
     Dosage: 10 MG, UNK
     Dates: start: 20190501
  10. LOW-OGESTREL [Concomitant]
     Active Substance: ETHINYL ESTRADIOL\NORGESTREL
     Dosage: UNK
     Dates: start: 1996
  11. TOPIRAMATE. [Interacting]
     Active Substance: TOPIRAMATE
     Indication: MIGRAINE
     Dosage: 25 MG, DAILY (1 WEEK)
     Dates: start: 20190315
  12. XELJANZ XR [Suspect]
     Active Substance: TOFACITINIB CITRATE
     Indication: RHEUMATOID ARTHRITIS
     Dosage: 11 MG, 1X/DAY
     Route: 048
     Dates: start: 20180810

REACTIONS (6)
  - Inhibitory drug interaction [Recovered/Resolved]
  - Gait disturbance [Recovered/Resolved]
  - Condition aggravated [Unknown]
  - Joint swelling [Recovered/Resolved]
  - Colitis microscopic [Unknown]
  - Pyrexia [Recovered/Resolved]

NARRATIVE: CASE EVENT DATE: 20190315
